FAERS Safety Report 8069046-9 (Version None)
Quarter: 2012Q1

REPORT INFORMATION
  Report Type: 
  Country: None (occurrence: None)
  Receive Date: 20120118
  Receipt Date: 20120109
  Transmission Date: 20120608
  Serious: Yes (Death)
  Sender: FDA-Public Use
  Company Number: JPI-P-014794

PATIENT
  Age: 75 Year
  Sex: Male

DRUGS (1)
  1. XYREM [Suspect]
     Indication: PRODUCT USED FOR UNKNOWN INDICATION
     Dosage: 4.5 GM (2.25 GM, 2 IN 1 D),ORAL
     Route: 048
     Dates: start: 20031223, end: 20040101

REACTIONS (5)
  - COMPLETED SUICIDE [None]
  - GUN SHOT WOUND [None]
  - RECTOSIGMOID CANCER [None]
  - DEPRESSION [None]
  - OPEN WOUND [None]
